FAERS Safety Report 11428180 (Version 1)
Quarter: 2015Q3

REPORT INFORMATION
  Report Type: Spontaneous
  Country: US (occurrence: US)
  Receive Date: 20150828
  Receipt Date: 20150828
  Transmission Date: 20151125
  Serious: No
  Sender: FDA-Public Use
  Company Number: US-ROCHE-1264194

PATIENT
  Sex: Male

DRUGS (3)
  1. RIBASPHERE RIBAPAK [Suspect]
     Active Substance: RIBAVIRIN
     Indication: CHRONIC HEPATITIS C
     Dosage: 600/600 IN DIVIDED DOSES , 24 WEEK COURSE
     Route: 065
     Dates: start: 20130814
  2. TELAPREVIR [Suspect]
     Active Substance: TELAPREVIR
     Indication: CHRONIC HEPATITIS C
     Route: 065
     Dates: start: 20130814
  3. PEGASYS [Suspect]
     Active Substance: PEGINTERFERON ALFA-2A
     Indication: CHRONIC HEPATITIS C
     Route: 065
     Dates: start: 20130814

REACTIONS (5)
  - Chills [Unknown]
  - Erythema [Unknown]
  - Pyrexia [Unknown]
  - Rash pruritic [Unknown]
  - Rash [Unknown]
